FAERS Safety Report 14928647 (Version 1)
Quarter: 2018Q2

REPORT INFORMATION
  Report Type: Spontaneous
  Country: DE (occurrence: DE)
  Receive Date: 20180523
  Receipt Date: 20180523
  Transmission Date: 20180711
  Serious: Yes (Hospitalization, Disabling)
  Sender: FDA-Public Use
  Company Number: DE-PFIZER INC-2018204436

PATIENT
  Age: 76 Year
  Sex: Male

DRUGS (11)
  1. NOVORAPID [Concomitant]
     Active Substance: INSULIN ASPART
     Dosage: UNK UNK, AS NEEDED
  2. METAMIZOLE [Concomitant]
     Active Substance: METAMIZOLE
     Dosage: 500 MG, 4X/DAY (500 MG, 1-1-1-1)
  3. PREGABALIN. [Suspect]
     Active Substance: PREGABALIN
     Dosage: 75 MG, 1X/DAY (75 MG, 1-0-0-0)
  4. LANTUS [Concomitant]
     Active Substance: INSULIN GLARGINE
     Dosage: UNK UNK, AS NEEDED
  5. ACETYLSALICYLSAEURE [Concomitant]
     Active Substance: ASPIRIN
     Dosage: 100 MG, 1X/DAY (100 MG, 0-1-0-0)
  6. PHENPROCOUMON [Concomitant]
     Active Substance: PHENPROCOUMON
     Dosage: 3 MG, AS NEEDED (3 MG, ACCORDING TO INR)
  7. CANDESARTAN. [Concomitant]
     Active Substance: CANDESARTAN
     Dosage: 32 MG, 1X/DAY (32 MG, 1-0-0-0)
  8. TORASEMID [Concomitant]
     Active Substance: TORSEMIDE
     Dosage: 50 MG, DAILY (10 MG, 3-2-0-0)
  9. PANTOPRAZOLE [Concomitant]
     Active Substance: PANTOPRAZOLE
     Dosage: 20 MG, 1X/DAY (20 MG, 1-0-0-0)
  10. METOPROLOL. [Suspect]
     Active Substance: METOPROLOL
     Dosage: 95 MG, 1X/DAY (95 MG, 0-0-0-1)
  11. ALLOPURINOL. [Concomitant]
     Active Substance: ALLOPURINOL
     Dosage: 100 MG, 1X/DAY (100 MG, 1-0-0-0)

REACTIONS (4)
  - Contraindicated product administered [Unknown]
  - Oedema peripheral [Unknown]
  - Dry gangrene [Unknown]
  - Inflammation [Unknown]
